FAERS Safety Report 7753468-7 (Version None)
Quarter: 2011Q3

REPORT INFORMATION
  Report Type: 
  Country: None (occurrence: None)
  Receive Date: 20110915
  Receipt Date: 20110906
  Transmission Date: 20111222
  Serious: Yes (Death, Life-Threatening, Hospitalization, Other)
  Sender: FDA-Public Use
  Company Number: JP-CEPHALON-2011001752

PATIENT
  Age: 82 Year
  Sex: Male
  Weight: 47 kg

DRUGS (19)
  1. BENZBROMARONE [Concomitant]
     Dates: start: 20110124, end: 20110127
  2. LOXOPROFEN SODIUM [Concomitant]
     Dates: start: 20110225, end: 20110301
  3. DEXTROMETHORPHAN HYDROBROMIDE [Concomitant]
     Dates: start: 20110402, end: 20110415
  4. TAMSULOSIN HYDROCHLORIDE [Concomitant]
     Dates: end: 20110415
  5. DEXAMETHASONE SODIUM PHOSPHATE [Concomitant]
  6. HEPARIN SODIUM [Concomitant]
  7. FUROSEMIDE [Concomitant]
     Dates: end: 20110226
  8. HYDROCORTISONE SODIUM SUCCINATE [Concomitant]
     Dates: start: 20110118, end: 20110315
  9. PREDNISOLONE ACETATE [Concomitant]
     Dates: start: 20110402, end: 20110417
  10. MIDAZOLAM HCL [Concomitant]
     Dates: start: 20110416, end: 20110420
  11. TREANDA [Suspect]
     Indication: MANTLE CELL LYMPHOMA
     Route: 042
     Dates: start: 20110119, end: 20110120
  12. TREANDA [Suspect]
     Route: 042
     Dates: start: 20110316, end: 20110317
  13. RAMOSETRON HYDROCHLORIDE [Concomitant]
     Dates: start: 20110119, end: 20110317
  14. TREANDA [Suspect]
     Route: 042
     Dates: start: 20110217, end: 20110218
  15. FLAVINE ADENINE DINUCLEOTIDE DISODIUM [Concomitant]
     Dates: end: 20110415
  16. DEXAMETHASONE [Concomitant]
     Dates: start: 20110119, end: 20110317
  17. BICALUTAMIDE [Concomitant]
     Dates: end: 20110415
  18. RITUXIMAB [Suspect]
     Indication: MANTLE CELL LYMPHOMA
     Route: 042
     Dates: start: 20110118, end: 20110315
  19. RAMOSETRON HYDROCHLORIDE [Concomitant]

REACTIONS (18)
  - GAMMA-GLUTAMYLTRANSFERASE INCREASED [None]
  - STAPHYLOCOCCAL INFECTION [None]
  - ECZEMA [None]
  - DISSEMINATED INTRAVASCULAR COAGULATION [None]
  - CYTOMEGALOVIRUS INFECTION [None]
  - LYMPHOCYTE COUNT DECREASED [None]
  - BLOOD URIC ACID INCREASED [None]
  - STOMATITIS [None]
  - FUNGAL INFECTION [None]
  - NEUTROPHIL COUNT DECREASED [None]
  - PNEUMOCYSTIS JIROVECI PNEUMONIA [None]
  - ANAEMIA [None]
  - CARDIAC FAILURE [None]
  - COUGH [None]
  - BRONCHITIS [None]
  - PERIARTHRITIS [None]
  - DIARRHOEA [None]
  - PYREXIA [None]
